FAERS Safety Report 5452309-0 (Version None)
Quarter: 2007Q3

REPORT INFORMATION
  Report Type: 
  Country: None (occurrence: None)
  Receive Date: 20070912
  Receipt Date: 20070912
  Transmission Date: 20080115
  Serious: Yes (Other)
  Sender: FDA-Public Use
  Company Number: None

PATIENT
  Age: 44 Year
  Sex: Female
  Weight: 78.0187 kg

DRUGS (2)
  1. CHANTIX [Suspect]
     Indication: SMOKING CESSATION THERAPY
     Dosage: 0.5 MG TWICE A DAY PO
     Route: 048
     Dates: start: 20070623, end: 20070821
  2. CHANTIX [Suspect]
     Dosage: 1 MG TWICE A DAY PO
     Route: 048

REACTIONS (9)
  - ABNORMAL DREAMS [None]
  - DEPRESSION [None]
  - DRY EYE [None]
  - DRY MOUTH [None]
  - FATIGUE [None]
  - IRRITABILITY [None]
  - MOOD SWINGS [None]
  - NAUSEA [None]
  - SOMNOLENCE [None]
